FAERS Safety Report 19959554 (Version 1)
Quarter: 2021Q4

REPORT INFORMATION
  Report Type: Spontaneous
  Country: US (occurrence: US)
  Receive Date: 20211015
  Receipt Date: 20211015
  Transmission Date: 20220303
  Serious: No
  Sender: FDA-Public Use
  Company Number: US-PFIZER INC-202101015592

PATIENT
  Age: 50 Year
  Sex: Female

DRUGS (3)
  1. XELJANZ [Suspect]
     Active Substance: TOFACITINIB CITRATE
     Dosage: 5 MG, 2X/DAY
     Route: 048
     Dates: start: 202104
  2. LASIX [Concomitant]
     Active Substance: FUROSEMIDE
  3. POTASSIUM [Concomitant]
     Active Substance: POTASSIUM
     Dosage: UNK

REACTIONS (16)
  - Drug ineffective [Unknown]
  - Pain in extremity [Unknown]
  - Peripheral swelling [Unknown]
  - Condition aggravated [Unknown]
  - Sensitivity to weather change [Unknown]
  - Dyspnoea exertional [Not Recovered/Not Resolved]
  - Pruritus [Not Recovered/Not Resolved]
  - Constipation [Not Recovered/Not Resolved]
  - Hypertension [Not Recovered/Not Resolved]
  - Migraine [Not Recovered/Not Resolved]
  - Dehydration [Not Recovered/Not Resolved]
  - Nausea [Not Recovered/Not Resolved]
  - Insomnia [Not Recovered/Not Resolved]
  - Renal pain [Unknown]
  - Chromaturia [Unknown]
  - Thirst [Unknown]

NARRATIVE: CASE EVENT DATE: 20210101
